FAERS Safety Report 7664984-0 (Version None)
Quarter: 2011Q3

REPORT INFORMATION
  Report Type: 
  Country: None (occurrence: None)
  Receive Date: 20110806
  Receipt Date: 20110214
  Transmission Date: 20111222
  Serious: No
  Sender: FDA-Public Use
  Company Number: US-ABBOTT-11P-163-0705031-00

PATIENT
  Sex: Male
  Weight: 72.64 kg

DRUGS (2)
  1. UNKNOWN MEDICATION [Concomitant]
     Indication: PROSTATOMEGALY
  2. NIASPAN [Suspect]
     Indication: BLOOD CHOLESTEROL INCREASED
     Dosage: AT BEDTIME
     Dates: start: 20110208

REACTIONS (1)
  - BLOOD PRESSURE INCREASED [None]
